FAERS Safety Report 16887316 (Version 1)
Quarter: 2019Q4

REPORT INFORMATION
  Report Type: Spontaneous
  Country: CA (occurrence: CA)
  Receive Date: 20191004
  Receipt Date: 20191004
  Transmission Date: 20200122
  Serious: Yes (Other)
  Sender: FDA-Public Use
  Company Number: CA-JNJFOC-20190935461

PATIENT
  Age: 58 Year
  Sex: Female

DRUGS (1)
  1. SIMPONI [Suspect]
     Active Substance: GOLIMUMAB
     Indication: DIABETES MELLITUS
     Dosage: STRENGTH = 100 MG
     Route: 058

REACTIONS (3)
  - Autoimmune disorder [Unknown]
  - Off label use [Unknown]
  - Product use in unapproved indication [Unknown]
